FAERS Safety Report 4280675-0 (Version None)
Quarter: 2004Q1

REPORT INFORMATION
  Report Type: 
  Country: None (occurrence: None)
  Receive Date: 20040127
  Receipt Date: 20040115
  Transmission Date: 20041129
  Serious: No
  Sender: FDA-Public Use
  Company Number: 04P-151-0247293-00

PATIENT
  Age: 39 Year
  Sex: Male

DRUGS (5)
  1. DEPAKENE [Suspect]
     Indication: EPILEPSY
     Dosage: 500 MG, 3 IN 1 D, ORAL
     Route: 048
     Dates: start: 20011001
  2. PIOGLITAZONE HCL [Suspect]
     Indication: DIABETES MELLITUS NON-INSULIN-DEPENDENT
     Dosage: 30 MG, 1 IN 1 D, ORAL; 30 MG, 1 IN 1 D, ORAL; 15 MG, 1 IN 1 D, ORAL
     Route: 048
     Dates: end: 20030101
  3. PIOGLITAZONE HCL [Suspect]
     Indication: DIABETES MELLITUS NON-INSULIN-DEPENDENT
     Dosage: 30 MG, 1 IN 1 D, ORAL; 30 MG, 1 IN 1 D, ORAL; 15 MG, 1 IN 1 D, ORAL
     Route: 048
     Dates: start: 20030101, end: 20030930
  4. PIOGLITAZONE HCL [Suspect]
     Indication: DIABETES MELLITUS NON-INSULIN-DEPENDENT
     Dosage: 30 MG, 1 IN 1 D, ORAL; 30 MG, 1 IN 1 D, ORAL; 15 MG, 1 IN 1 D, ORAL
     Route: 048
     Dates: start: 20021201
  5. METFORMIN HCL [Concomitant]

REACTIONS (2)
  - DRUG INTERACTION [None]
  - PETIT MAL EPILEPSY [None]
